FAERS Safety Report 26185482 (Version 1)
Quarter: 2025Q4

REPORT INFORMATION
  Report Type: Spontaneous
  Country: KR (occurrence: KR)
  Receive Date: 20251222
  Receipt Date: 20251222
  Transmission Date: 20260117
  Serious: Yes (Other)
  Sender: Kenvue
  Company Number: KR-KENVUE-20251207545

PATIENT
  Age: 4 Decade

DRUGS (1)
  1. TYLENOL 8HR [Suspect]
     Active Substance: ACETAMINOPHEN
     Indication: Pain
     Dosage: 650 MILLIGRAM, ONCE A DAY
     Route: 061

REACTIONS (2)
  - Dyspnoea [Recovered/Resolved]
  - Vomiting [Recovered/Resolved]
